FAERS Safety Report 10269658 (Version 2)
Quarter: 2014Q3

REPORT INFORMATION
  Report Type: Spontaneous
  Country: AT (occurrence: None)
  Receive Date: 20140625
  Receipt Date: 20140709
  Transmission Date: 20150326
  Serious: Yes (Hospitalization, Other)
  Sender: FDA-Public Use
  Company Number: UNT-2014-001713

PATIENT
  Sex: Female

DRUGS (1)
  1. REMODULIN [Suspect]
     Active Substance: TREPROSTINIL
     Indication: PRODUCT USED FOR UNKNOWN INDICATION
     Route: 058
     Dates: start: 201005

REACTIONS (9)
  - Nausea [None]
  - Vomiting [None]
  - Gastrointestinal haemorrhage [None]
  - Asthenia [None]
  - Diarrhoea [None]
  - Headache [None]
  - Intestinal polyp [None]
  - Infusion site discomfort [None]
  - Haematochezia [None]

NARRATIVE: CASE EVENT DATE: 20140528
